FAERS Safety Report 14106860 (Version 1)
Quarter: 2017Q4

REPORT INFORMATION
  Report Type: Spontaneous
  Country: US (occurrence: US)
  Receive Date: 20171018
  Receipt Date: 20171018
  Transmission Date: 20180321
  Serious: Yes (Other)
  Sender: FDA-Public Use
  Company Number: None

PATIENT
  Age: 48 Year
  Sex: Female
  Weight: 82.35 kg

DRUGS (8)
  1. FLONASE [Concomitant]
     Active Substance: FLUTICASONE PROPIONATE
  2. PROBIOTIC [Concomitant]
     Active Substance: PROBIOTICS NOS
  3. FLOVENT [Concomitant]
     Active Substance: FLUTICASONE PROPIONATE
  4. FERAHEME [Suspect]
     Active Substance: FERUMOXYTOL NON-STOICHIOMETRIC MAGNETITE
     Indication: BLOOD IRON DECREASED
     Dosage: QUANTITY:510 INTRAVENOUS;OTHER FREQUENCY:2 DOSES/2 WEEKS;?
     Route: 042
  5. SEREVENT DISKUS [Concomitant]
     Active Substance: SALMETEROL XINAFOATE
  6. MIRALAX [Concomitant]
     Active Substance: POLYETHYLENE GLYCOL 3350
  7. MVI [Concomitant]
     Active Substance: VITAMINS
  8. TIROSINT [Concomitant]
     Active Substance: LEVOTHYROXINE SODIUM

REACTIONS (7)
  - Rash [None]
  - Lip swelling [None]
  - Cough [None]
  - Pharyngeal oedema [None]
  - Chills [None]
  - Eye swelling [None]
  - Tongue pruritus [None]

NARRATIVE: CASE EVENT DATE: 20171018
